FAERS Safety Report 9506602 (Version 1)
Quarter: 2013Q3

REPORT INFORMATION
  Report Type: Spontaneous
  Country: GR (occurrence: GR)
  Receive Date: 20130907
  Receipt Date: 20130907
  Transmission Date: 20140515
  Serious: Yes (Hospitalization)
  Sender: FDA-Public Use
  Company Number: GR-009507513-1309GRC000674

PATIENT
  Age: 68 Year
  Sex: Female

DRUGS (15)
  1. ESMERON [Suspect]
     Indication: MAINTENANCE OF ANAESTHESIA
     Dosage: 0.6 MG/KG, UNK
  2. ESMERON [Suspect]
     Indication: ENDOTRACHEAL INTUBATION
     Dosage: 8-10MICROGRAM/KG/MIN
  3. MIDAZOLAM [Suspect]
     Indication: INDUCTION OF ANAESTHESIA
     Dosage: 0.01 MG/KG, UNK
     Dates: start: 2013, end: 2013
  4. PROPOFOL [Suspect]
     Indication: INDUCTION OF ANAESTHESIA
     Dosage: 1 MG/KG, UNK
  5. FENTANYL [Suspect]
     Indication: INDUCTION OF ANAESTHESIA
     Dosage: 2 MICROGRAM PER KILOGRAM,
  6. FENTANYL [Suspect]
     Indication: MAINTENANCE OF ANAESTHESIA
     Dosage: 15MICROGRAM PER KILOGRAM
  7. SEVOFLURANE [Suspect]
     Indication: MAINTENANCE OF ANAESTHESIA
     Dosage: 1-2%
  8. SOMATOSTATIN [Concomitant]
     Dosage: SLOW RELEASING
  9. SOMATOSTATIN [Concomitant]
     Dosage: 300 MICROGRAM,ONE HOUR PRIOR TO SURGICAL OPERATION
     Route: 058
  10. SOMATOSTATIN [Concomitant]
     Dosage: 70-200 MICROGRAM PER HOUR
     Route: 042
  11. SOMATOSTATIN [Concomitant]
     Dosage: 25-100 MICROGRAM
     Route: 042
  12. DOBUTAMINE [Concomitant]
     Dosage: 5-12 MICROGRAM PER KILOGRAM PER MINUTE
  13. EPINEPHRINE [Concomitant]
     Dosage: 0.15-0.20 MICROGRAM PER KILOGRAM PER MINUTE
  14. NOREPINEPHRINE [Concomitant]
     Dosage: 0.2 MICROGRAM PER KILOGRAM PER MINUTE
  15. VASOPRESSIN [Concomitant]
     Dosage: 5-7 U/H

REACTIONS (1)
  - Carcinoid crisis [Unknown]
